FAERS Safety Report 22619871 (Version 1)
Quarter: 2023Q2

REPORT INFORMATION
  Report Type: Spontaneous
  Country: US (occurrence: None)
  Receive Date: 20230616
  Receipt Date: 20230616
  Transmission Date: 20230721
  Serious: Yes (Hospitalization)
  Sender: FDA-Public Use
  Company Number: None

PATIENT
  Age: 50 Year
  Sex: Female
  Weight: 83.5 kg

DRUGS (2)
  1. KIMYRSA [Suspect]
     Active Substance: ORITAVANCIN DIPHOSPHATE
     Indication: Diabetic foot
     Dosage: OTHER FREQUENCY : ONE TIME DOSE;?
     Route: 041
     Dates: start: 20230309, end: 20230309
  2. 5% Dextrose 250ml [Concomitant]
     Dates: start: 20230309, end: 20230309

REACTIONS (4)
  - Pruritus [None]
  - Hypoaesthesia oral [None]
  - Hypoaesthesia oral [None]
  - Infusion related reaction [None]

NARRATIVE: CASE EVENT DATE: 20230309
